FAERS Safety Report 5023218-6 (Version None)
Quarter: 2006Q2

REPORT INFORMATION
  Report Type: 
  Country: None (occurrence: None)
  Receive Date: 20060612
  Receipt Date: 20060209
  Transmission Date: 20061013
  Serious: Yes (Death, Hospitalization, Other)
  Sender: FDA-Public Use
  Company Number: JP-AVENTIS-200610445JP

PATIENT
  Age: 71 Year
  Sex: Female

DRUGS (9)
  1. TAXOTERE [Suspect]
     Indication: BREAST CANCER METASTATIC
     Route: 041
     Dates: start: 20060201
  2. HERCEPTIN [Suspect]
     Indication: BREAST CANCER METASTATIC
     Route: 041
     Dates: start: 20051208
  3. HERCEPTIN [Suspect]
     Route: 041
     Dates: start: 20051215
  4. LANIRAPID [Concomitant]
     Indication: ATRIAL FLUTTER
     Dosage: DOSE: 1TABLET
     Dates: start: 20051206
  5. OLMETEC                                 /GFR/ [Concomitant]
     Indication: ATRIAL FLUTTER
     Dosage: DOSE: 1TABLET
     Dates: start: 20051206
  6. TORSEMIDE [Concomitant]
     Indication: ATRIAL FLUTTER
     Dosage: DOSE: 1TABLET
     Dates: start: 20051206
  7. WARFARIN SODIUM [Concomitant]
     Indication: ATRIAL FLUTTER
     Dosage: DOSE: 1TABLET
     Dates: start: 20051206
  8. OXYCONTIN [Concomitant]
     Indication: PAIN
     Dates: start: 20060201, end: 20060207
  9. OXYCONTIN [Concomitant]
     Dates: start: 20060208

REACTIONS (22)
  - ALOPECIA [None]
  - BLOOD ALBUMIN DECREASED [None]
  - BLOOD ALKALINE PHOSPHATASE INCREASED [None]
  - BLOOD BILIRUBIN INCREASED [None]
  - BLOOD SODIUM DECREASED [None]
  - BREAST CANCER [None]
  - CARDIAC FAILURE [None]
  - DIZZINESS [None]
  - DRY SKIN [None]
  - EPISTAXIS [None]
  - HAEMATOCRIT DECREASED [None]
  - HAEMOGLOBIN DECREASED [None]
  - MALAISE [None]
  - METASTASES TO LUNG [None]
  - MYALGIA [None]
  - NEUTROPHIL COUNT DECREASED [None]
  - PNEUMONIA [None]
  - PROTEIN TOTAL DECREASED [None]
  - PYREXIA [None]
  - RED BLOOD CELL COUNT DECREASED [None]
  - TINNITUS [None]
  - WHITE BLOOD CELL COUNT DECREASED [None]
